FAERS Safety Report 22274749 (Version 2)
Quarter: 2023Q2

REPORT INFORMATION
  Report Type: Spontaneous
  Country: DE (occurrence: DE)
  Receive Date: 20230502
  Receipt Date: 20230508
  Transmission Date: 20230721
  Serious: Yes (Death, Hospitalization, Other)
  Sender: FDA-Public Use
  Company Number: DE-BRISTOL-MYERS SQUIBB COMPANY-2022-149481

PATIENT
  Age: 62 Year
  Sex: Male
  Weight: 62 kg

DRUGS (1)
  1. AZACITIDINE [Suspect]
     Active Substance: AZACITIDINE
     Indication: Acute myeloid leukaemia
     Dosage: 64.5 MILLIGRAM/SQ. METER, FOR 6 DAYS
     Route: 042
     Dates: start: 20220406, end: 20221023

REACTIONS (3)
  - Acute myeloid leukaemia [Fatal]
  - Urinary tract infection [Recovered/Resolved with Sequelae]
  - Klebsiella infection [Unknown]

NARRATIVE: CASE EVENT DATE: 20221130
